FAERS Safety Report 7264068-X (Version None)
Quarter: 2011Q1

REPORT INFORMATION
  Report Type: 
  Country: None (occurrence: None)
  Receive Date: 20110130
  Receipt Date: 20101230
  Transmission Date: 20110831
  Serious: No
  Sender: FDA-Public Use
  Company Number: US-ABBOTT-11P-163-0694634-00

PATIENT
  Age: 53 Year
  Sex: Male

DRUGS (11)
  1. LISINOPRIL [Concomitant]
     Indication: BLOOD PRESSURE
  2. HYDROCHLOROQUINE [Concomitant]
     Indication: ARTHRITIS
  3. LEVOMERE INSULIN [Concomitant]
     Indication: DIABETES MELLITUS
     Dosage: DAILY IN AM
  4. FOLIC ACID [Concomitant]
     Indication: PRODUCT USED FOR UNKNOWN INDICATION
  5. HYDROCHLOROTHIAZIDE [Concomitant]
     Indication: BLOOD PRESSURE
  6. HUMIRA [Suspect]
     Indication: PSORIATIC ARTHROPATHY
     Dates: start: 20101001
  7. PRANDIN [Concomitant]
     Indication: DIABETES MELLITUS
     Dosage: BEFORE MEALS
  8. SYNTHROID [Concomitant]
     Indication: HYPOTHYROIDISM
  9. METHOTREXATE [Concomitant]
     Indication: PRODUCT USED FOR UNKNOWN INDICATION
  10. ACTOS [Concomitant]
     Indication: DIABETES MELLITUS
  11. ATENOLOL [Concomitant]
     Indication: BLOOD PRESSURE

REACTIONS (4)
  - PRODUCTIVE COUGH [None]
  - PAIN [None]
  - RHINORRHOEA [None]
  - INJECTION SITE PAIN [None]
